FAERS Safety Report 5578323-2 (Version None)
Quarter: 2007Q4

REPORT INFORMATION
  Report Type: 
  Country: None (occurrence: None)
  Receive Date: 20071130
  Receipt Date: 20070706
  Transmission Date: 20080405
  Serious: No
  Sender: FDA-Public Use
  Company Number: US200707001106

PATIENT
  Age: 56 Year
  Sex: Female
  Weight: 113.4 kg

DRUGS (6)
  1. BYETTA [Suspect]
     Indication: TYPE 2 DIABETES MELLITUS
     Dosage: 5, 10, UG 2/D, SUBCUTANEOUS
     Route: 058
     Dates: start: 20061128, end: 20070101
  2. BYETTA [Suspect]
     Indication: TYPE 2 DIABETES MELLITUS
     Dosage: 5, 10, UG 2/D, SUBCUTANEOUS
     Route: 058
     Dates: start: 20070120, end: 20070101
  3. BYETTA [Suspect]
  4. AMARYL [Concomitant]
  5. METFORMIN HCL [Concomitant]
  6. AVANDIA [Concomitant]

REACTIONS (6)
  - ABDOMINAL PAIN UPPER [None]
  - BLOOD GLUCOSE DECREASED [None]
  - BLOOD GLUCOSE INCREASED [None]
  - DECREASED APPETITE [None]
  - ULCER [None]
  - WEIGHT DECREASED [None]
